FAERS Safety Report 16635289 (Version 2)
Quarter: 2019Q3

REPORT INFORMATION
  Report Type: Spontaneous
  Country: US (occurrence: US)
  Receive Date: 20190726
  Receipt Date: 20190809
  Transmission Date: 20191004
  Serious: No
  Sender: FDA-Public Use
  Company Number: US-ASTRAZENECA-2019SE96614

PATIENT
  Age: 1004 Month
  Sex: Female
  Weight: 68 kg

DRUGS (23)
  1. VITAMIN B12 [Concomitant]
     Active Substance: CYANOCOBALAMIN
  2. COZAAR [Concomitant]
     Active Substance: LOSARTAN POTASSIUM
     Indication: HYPERTENSION
  3. LASIX [Concomitant]
     Active Substance: FUROSEMIDE
  4. FOSAMAX [Concomitant]
     Active Substance: ALENDRONATE SODIUM
     Indication: OSTEOPOROSIS
  5. ROSUVASTATIN CALCIUM. [Suspect]
     Active Substance: ROSUVASTATIN CALCIUM
     Indication: BLOOD CHOLESTEROL INCREASED
     Route: 048
     Dates: end: 20190622
  6. PAXIL [Concomitant]
     Active Substance: PAROXETINE HYDROCHLORIDE
     Indication: ANXIETY
  7. ZANTAC [Concomitant]
     Active Substance: RANITIDINE HYDROCHLORIDE
  8. CRESTOR [Concomitant]
     Active Substance: ROSUVASTATIN CALCIUM
  9. TYLENOL [Concomitant]
     Active Substance: ACETAMINOPHEN
     Dosage: TAKE 500MG BY MOUTH EVERY 6 HOURS AS NEEDED FOR MILD PAIN
     Route: 048
  10. ASPIRIN. [Concomitant]
     Active Substance: ASPIRIN
     Route: 048
  11. XYLOCAINE [Concomitant]
     Active Substance: LIDOCAINE HYDROCHLORIDE
  12. CARTIA XT [Concomitant]
     Active Substance: DILTIAZEM HYDROCHLORIDE
     Route: 048
  13. IMDUR [Concomitant]
     Active Substance: ISOSORBIDE MONONITRATE
  14. PRILOSEC [Suspect]
     Active Substance: OMEPRAZOLE MAGNESIUM
  15. VITAMIN D3 [Concomitant]
     Active Substance: CHOLECALCIFEROL
  16. FEMHRT [Concomitant]
     Active Substance: ETHINYL ESTRADIOL\NORETHINDRONE ACETATE
  17. K-DUR/KLOR-CON M [Concomitant]
  18. XYLOCAINE/EPINEPHRINE [Concomitant]
  19. ATENOLOL. [Suspect]
     Active Substance: ATENOLOL
  20. TENORMIN [Concomitant]
     Active Substance: ATENOLOL
     Dosage: TAKE ONE HALF TABLET BY MOUTH EVERY MORNING
     Route: 048
  21. BOTOX [Concomitant]
     Active Substance: ONABOTULINUMTOXINA
     Indication: BLADDER PAIN
     Dosage: INJECT 100 UNITS INTO THE MUSCLE ONCE
  22. SYNTHROID/LEVOTHROID [Concomitant]
  23. REMERON [Concomitant]
     Active Substance: MIRTAZAPINE
     Indication: INSOMNIA

REACTIONS (6)
  - Pain in extremity [Not Recovered/Not Resolved]
  - Musculoskeletal stiffness [Not Recovered/Not Resolved]
  - Muscular weakness [Not Recovered/Not Resolved]
  - Fatigue [Not Recovered/Not Resolved]
  - Dyspnoea [Not Recovered/Not Resolved]
  - Choking [Unknown]

NARRATIVE: CASE EVENT DATE: 201901
